FAERS Safety Report 7515557-1 (Version None)
Quarter: 2011Q2

REPORT INFORMATION
  Report Type: 
  Country: None (occurrence: None)
  Receive Date: 20110601
  Receipt Date: 20100712
  Transmission Date: 20111010
  Serious: Yes (Hospitalization, Other)
  Sender: FDA-Public Use
  Company Number: US-PFIZER INC-2010038701

PATIENT
  Sex: Female

DRUGS (5)
  1. ALBUTEROL SULFATE AUTOHALER [Concomitant]
     Indication: ASTHMA
     Dosage: UNK
  2. CHANTIX [Suspect]
     Indication: SMOKING CESSATION THERAPY
     Dosage: 1 MG, UNK
     Route: 048
     Dates: start: 20080128, end: 20081001
  3. VICODIN [Concomitant]
     Indication: BACK PAIN
     Dosage: UNK
     Dates: start: 19991219
  4. VICODIN [Concomitant]
     Indication: NECK PAIN
  5. VICODIN [Concomitant]
     Indication: PAIN IN EXTREMITY

REACTIONS (7)
  - CONVULSION [None]
  - LOSS OF CONSCIOUSNESS [None]
  - MANIA [None]
  - DEPRESSION [None]
  - AGGRESSION [None]
  - PARANOIA [None]
  - ANXIETY [None]
